FAERS Safety Report 7645152-5 (Version None)
Quarter: 2011Q3

REPORT INFORMATION
  Report Type: 
  Country: None (occurrence: None)
  Receive Date: 20110729
  Receipt Date: 20110721
  Transmission Date: 20111222
  Serious: Yes (Other)
  Sender: FDA-Public Use
  Company Number: US-JNJFOC-20110301356

PATIENT
  Sex: Female
  Weight: 79.38 kg

DRUGS (11)
  1. DURAGESIC-100 [Suspect]
     Indication: PAIN
     Route: 062
  2. FENTANYL-100 [Suspect]
     Indication: PAIN
     Route: 062
  3. DURAGESIC-100 [Suspect]
     Dosage: NDC: 50458-0092-05
     Route: 062
  4. DURAGESIC-100 [Suspect]
     Route: 062
  5. DURAGESIC-100 [Suspect]
     Route: 062
     Dates: start: 20080101
  6. PREMARIN [Concomitant]
     Indication: HORMONE REPLACEMENT THERAPY
     Route: 048
     Dates: start: 19910101
  7. XANAX [Concomitant]
     Indication: SLEEP DISORDER THERAPY
     Route: 048
  8. TENORMIN [Concomitant]
     Indication: PALPITATIONS
     Dosage: 50 MG HALF DAILY
     Route: 048
     Dates: start: 19920101
  9. DARVOCET [Concomitant]
     Indication: BREAKTHROUGH PAIN
     Dosage: AS NEEDED
     Route: 048
     Dates: end: 20110101
  10. PEPCID [Concomitant]
     Indication: GASTROINTESTINAL DISORDER THERAPY
     Route: 048
  11. TRAMADOL HCL [Suspect]
     Indication: BREAKTHROUGH PAIN
     Dosage: ONCE EVERY 8 HOURS AS NEEDED
     Route: 048
     Dates: start: 20110101

REACTIONS (8)
  - JOINT DESTRUCTION [None]
  - MALAISE [None]
  - DRUG TOLERANCE [None]
  - BRONCHITIS [None]
  - WRONG TECHNIQUE IN DRUG USAGE PROCESS [None]
  - VOMITING [None]
  - CYSTITIS [None]
  - THERAPEUTIC RESPONSE DECREASED [None]
